FAERS Safety Report 8945317 (Version 4)
Quarter: 2013Q3

REPORT INFORMATION
  Report Type: Report from Study
  Country: JP (occurrence: JP)
  Receive Date: 20121205
  Receipt Date: 20130724
  Transmission Date: 20140515
  Serious: Yes (Hospitalization)
  Sender: FDA-Public Use
  Company Number: JP-009507513-1212JPN000251

PATIENT
  Age: 44 Year
  Sex: Male
  Weight: 74 kg

DRUGS (10)
  1. PEGINTRON [Suspect]
     Indication: CHRONIC HEPATITIS C
     Dosage: 1.35 MICROGRAM PER KILOGRAM, QW
     Route: 058
     Dates: start: 20120823, end: 20121023
  2. PEGINTRON [Suspect]
     Dosage: 1.13 MICROGRAM PER KILOGRAM, QW
     Route: 058
     Dates: start: 20121031, end: 20121108
  3. PEGINTRON [Suspect]
     Dosage: 1.27 MICROGRAM PER KILOGRAM, QW
     Route: 058
     Dates: start: 20121109, end: 20121212
  4. PEGINTRON [Suspect]
     Dosage: 0.99 MICROGRAM PER KILOGRAM, QW
     Route: 058
     Dates: start: 20121213
  5. PEGINTRON [Suspect]
     Dosage: 1.27 MICROGRAM PER KILOGRAM, QW
     Route: 058
     Dates: start: 20121220, end: 20130208
  6. REBETOL [Suspect]
     Indication: CHRONIC HEPATITIS C
     Dosage: 800 MG, QD
     Route: 048
     Dates: start: 20120823, end: 20120913
  7. REBETOL [Suspect]
     Dosage: 600 MG, QD
     Route: 048
     Dates: start: 20120914, end: 20121023
  8. REBETOL [Suspect]
     Dosage: 600 MG, QD
     Route: 048
     Dates: start: 20121031, end: 20121108
  9. REBETOL [Suspect]
     Dosage: 800 MG, QD
     Route: 048
     Dates: start: 20121109, end: 20130214
  10. TELAVIC [Suspect]
     Indication: CHRONIC HEPATITIS C
     Dosage: 2250 MG, QD
     Route: 048
     Dates: start: 20120823, end: 20121023

REACTIONS (1)
  - Pancreatitis acute [Recovered/Resolved]
